FAERS Safety Report 19180757 (Version 4)
Quarter: 2022Q2

REPORT INFORMATION
  Report Type: Report from Study
  Country: CA (occurrence: CA)
  Receive Date: 20210426
  Receipt Date: 20220516
  Transmission Date: 20220721
  Serious: Yes (Other)
  Sender: FDA-Public Use
  Company Number: PHHY2017CA185404

PATIENT
  Age: 45 Year
  Sex: Male

DRUGS (12)
  1. XOLAIR [Suspect]
     Active Substance: OMALIZUMAB
     Indication: Asthma
     Dosage: 375 MG, BIW
     Route: 058
     Dates: start: 20130419, end: 20130514
  2. XOLAIR [Suspect]
     Active Substance: OMALIZUMAB
     Dosage: 375 MG, BIW
     Route: 058
     Dates: start: 20180510
  3. XOLAIR [Suspect]
     Active Substance: OMALIZUMAB
     Dosage: UNK
     Route: 065
     Dates: start: 20210630
  4. DILTIAZEM [Suspect]
     Active Substance: DILTIAZEM
     Indication: Arrhythmia
     Dosage: 1 DOSAGE FORM, QD
     Route: 048
     Dates: start: 2007
  5. RANITIDINE [Suspect]
     Active Substance: RANITIDINE
     Indication: Gastrooesophageal reflux disease
     Dosage: 1 DOSAGE FORM, QD
     Route: 048
     Dates: start: 1997
  6. SPIRIVA [Concomitant]
     Active Substance: TIOTROPIUM BROMIDE MONOHYDRATE
     Indication: Asthma
     Dosage: 2 DOSAGE FORM, QD
     Route: 055
  7. ALVESCO [Concomitant]
     Active Substance: CICLESONIDE
     Indication: Asthma
     Dosage: 1 DOSAGE FORM, BID
     Route: 055
     Dates: end: 2021
  8. ZENHALE [Concomitant]
     Active Substance: FORMOTEROL FUMARATE\MOMETASONE FUROATE
     Indication: Asthma
     Dosage: 2 DOSAGE FORM, BID
     Route: 055
     Dates: start: 1997
  9. VENTOLIN [Concomitant]
     Active Substance: ALBUTEROL SULFATE
     Indication: Asthma
     Dosage: 2 DOSAGE FORM, PRN
     Route: 055
  10. SINGULAIR [Concomitant]
     Active Substance: MONTELUKAST SODIUM
     Indication: Asthma
     Dosage: 1 DOSAGE FORM, QD
     Route: 048
     Dates: start: 1997, end: 2021
  11. MESALAMINE [Concomitant]
     Active Substance: MESALAMINE
     Indication: Diverticulitis
     Dosage: 1 DOSAGE FORM, QD
     Route: 048
     Dates: start: 2012
  12. CIPRODEX [Concomitant]
     Active Substance: CIPROFLOXACIN HYDROCHLORIDE\DEXAMETHASONE
     Indication: Ear infection
     Dosage: 4 DOSAGE FORM, QD
     Route: 065
     Dates: start: 2013

REACTIONS (11)
  - Forced expiratory volume decreased [Not Recovered/Not Resolved]
  - Red blood cell count increased [Unknown]
  - Mean cell volume decreased [Unknown]
  - Bronchospasm [Unknown]
  - Haemoptysis [Unknown]
  - Dyspnoea [Unknown]
  - Chest discomfort [Unknown]
  - Scratch [Unknown]
  - Injection site pain [Unknown]
  - Asthma [Unknown]
  - Cough [Unknown]

NARRATIVE: CASE EVENT DATE: 20130509
